FAERS Safety Report 14959326 (Version 5)
Quarter: 2023Q2

REPORT INFORMATION
  Report Type: Spontaneous
  Country: FR (occurrence: FR)
  Receive Date: 20180531
  Receipt Date: 20230626
  Transmission Date: 20230721
  Serious: Yes (Hospitalization, Other)
  Sender: FDA-Public Use
  Company Number: None

PATIENT
  Age: 78 Year
  Sex: Female
  Weight: 68 kg

DRUGS (16)
  1. OXALIPLATIN [Suspect]
     Active Substance: OXALIPLATIN
     Indication: Rectal cancer
     Dosage: 50 MG, UNK
     Route: 042
     Dates: start: 2006, end: 2006
  2. ALBUTEROL [Suspect]
     Active Substance: ALBUTEROL
     Indication: Asthma
     Dosage: 1 DF, PRN/ 1 INHALATION IN CASE OF SHORTNESS OF BREATH
     Route: 055
     Dates: start: 201708
  3. BOTULINUM TOXIN TYPE A [Suspect]
     Active Substance: BOTULINUM TOXIN TYPE A
     Indication: Anal incontinence
     Dosage: 500 UNITS, SINGLE/ 9 INJECTIONS OF 500 UNITS
     Route: 030
  4. BOTULINUM TOXIN TYPE A [Suspect]
     Active Substance: BOTULINUM TOXIN TYPE A
     Dosage: 500 UNITS, SINGLE
     Route: 030
     Dates: start: 201201, end: 201201
  5. BUMETANIDE [Suspect]
     Active Substance: BUMETANIDE
     Indication: Hypertension
     Dosage: 1 MILLIGRAM DAILY; 5 MG, UNK
     Route: 048
     Dates: start: 201708
  6. PULMICORT TURBUHALER [Suspect]
     Active Substance: BUDESONIDE
     Indication: Chronic obstructive pulmonary disease
     Dosage: 200 ?G, BID, UNIT DOSE : 200 MCG, FREQUENCY TIME : 12 HOURS
     Route: 055
     Dates: start: 2015
  7. SINGULAIR [Suspect]
     Active Substance: MONTELUKAST SODIUM
     Indication: Asthma
     Dosage: 100 MG, UNK
     Route: 048
     Dates: start: 2015
  8. SINGULAIR [Suspect]
     Active Substance: MONTELUKAST SODIUM
     Dosage: 10 MILLIGRAM DAILY; 10 MG, QD
     Route: 048
  9. GLYCOPYRRONIUM\INDACATEROL [Suspect]
     Active Substance: GLYCOPYRRONIUM\INDACATEROL
     Indication: Chronic obstructive pulmonary disease
     Dosage: UNIT DOSE : 1 DF
     Route: 055
  10. FLUCONAZOLE [Suspect]
     Active Substance: FLUCONAZOLE
     Indication: Fungal infection
     Dosage: 50 MOUTHWASHES
     Route: 002
     Dates: start: 201708
  11. FLUCONAZOLE [Suspect]
     Active Substance: FLUCONAZOLE
     Indication: Fungal infection
     Dosage: 50 MOUTHWASHES
     Route: 002
     Dates: start: 201708
  12. PREDNISONE [Suspect]
     Active Substance: PREDNISONE
     Indication: Chronic obstructive pulmonary disease
     Dosage: 12 MILLIGRAM DAILY; 12 MG, QD
     Route: 048
     Dates: start: 201708
  13. POTASSIUM CHLORIDE [Suspect]
     Active Substance: POTASSIUM CHLORIDE
     Indication: Hypokalaemia
     Dosage: 2 DOSAGE FORMS DAILY; 2 DF, QD
     Route: 048
     Dates: start: 201708
  14. THEOPHYLLINE SODIUM ACETATE [Suspect]
     Active Substance: THEOPHYLLINE SODIUM ACETATE
     Indication: Chronic obstructive pulmonary disease
     Dosage: 2 DOSAGE FORMS DAILY;
     Route: 048
  15. THEOPHYLLINE SODIUM ACETATE [Suspect]
     Active Substance: THEOPHYLLINE SODIUM ACETATE
     Dosage: 600 MILLIGRAM DAILY; 300 MG, BID
     Route: 048
  16. XELODA [Suspect]
     Active Substance: CAPECITABINE
     Indication: Rectal cancer
     Dosage: 825 MG/M2, UNK
     Route: 048
     Dates: start: 2006, end: 2006

REACTIONS (3)
  - Left ventricular failure [Not Recovered/Not Resolved]
  - Arteriosclerosis coronary artery [Not Recovered/Not Resolved]
  - Dilated cardiomyopathy [Not Recovered/Not Resolved]

NARRATIVE: CASE EVENT DATE: 20170801
